FAERS Safety Report 7794834-3 (Version None)
Quarter: 2011Q4

REPORT INFORMATION
  Report Type: 
  Country: None (occurrence: None)
  Receive Date: 20111004
  Receipt Date: 20110920
  Transmission Date: 20120403
  Serious: Yes (Other)
  Sender: FDA-Public Use
  Company Number: PHHY2011EC85385

PATIENT
  Sex: Female

DRUGS (2)
  1. CARVEDILOL [Concomitant]
     Dosage: BID
  2. DIOVAN HCT [Suspect]
     Indication: HYPERTENSION
     Dosage: 1 DF,DAILY
     Route: 048
     Dates: start: 20080520, end: 20110701

REACTIONS (2)
  - THROMBOSIS [None]
  - BLOOD PRESSURE SYSTOLIC INCREASED [None]
